FAERS Safety Report 23895979 (Version 1)
Quarter: 2024Q2

REPORT INFORMATION
  Report Type: Spontaneous
  Country: US (occurrence: None)
  Receive Date: 20240523
  Receipt Date: 20240523
  Transmission Date: 20240715
  Serious: No
  Sender: FDA-Public Use
  Company Number: None

PATIENT

DRUGS (1)
  1. VOSORITIDE [Suspect]
     Active Substance: VOSORITIDE
     Route: 058

REACTIONS (3)
  - Product preparation error [None]
  - Dose calculation error [None]
  - Product prescribing error [None]
